FAERS Safety Report 17025768 (Version 2)
Quarter: 2019Q4

REPORT INFORMATION
  Report Type: Spontaneous
  Country: US (occurrence: US)
  Receive Date: 20191113
  Receipt Date: 20191118
  Transmission Date: 20200122
  Serious: No
  Sender: FDA-Public Use
  Company Number: US-PFIZER INC-2019484721

PATIENT
  Sex: Female

DRUGS (1)
  1. AROMASIN [Suspect]
     Active Substance: EXEMESTANE
     Dosage: UNK

REACTIONS (9)
  - Blood cholesterol increased [Unknown]
  - Ejection fraction abnormal [Unknown]
  - Pain [Unknown]
  - Formication [Unknown]
  - Abnormal dreams [Unknown]
  - Insomnia [Unknown]
  - Aphasia [Unknown]
  - Cardiac disorder [Unknown]
  - Fatigue [Unknown]
